FAERS Safety Report 7030904-5 (Version None)
Quarter: 2010Q4

REPORT INFORMATION
  Report Type: 
  Country: None (occurrence: None)
  Receive Date: 20101006
  Receipt Date: 20100927
  Transmission Date: 20110411
  Serious: Yes (Hospitalization)
  Sender: FDA-Public Use
  Company Number: US-ABBOTT-10P-163-0673574-00

PATIENT
  Sex: Female
  Weight: 67.192 kg

DRUGS (5)
  1. ZEMPLAR [Suspect]
     Indication: RENAL FAILURE CHRONIC
     Dosage: UNKNOWN DOSE
  2. LEVOXYL [Concomitant]
     Indication: PRODUCT USED FOR UNKNOWN INDICATION
  3. SIMVASTATIN [Concomitant]
     Indication: PRODUCT USED FOR UNKNOWN INDICATION
  4. COUMADIN [Concomitant]
     Indication: THROMBOSIS
     Dosage: PATIENT GOING TO SWITCH TO PLAVIX SOON.
     Dates: end: 20100901
  5. INSULIN [Concomitant]
     Indication: PRODUCT USED FOR UNKNOWN INDICATION

REACTIONS (4)
  - AMNESIA [None]
  - MENTAL DISORDER [None]
  - RENAL FAILURE [None]
  - SPEECH DISORDER [None]
